FAERS Safety Report 19212335 (Version 1)
Quarter: 2021Q2

REPORT INFORMATION
  Report Type: Spontaneous
  Country: US (occurrence: US)
  Receive Date: 20210504
  Receipt Date: 20210504
  Transmission Date: 20210717
  Serious: No
  Sender: FDA-Public Use
  Company Number: US-GLAXOSMITHKLINE-US2021AMR093210

PATIENT
  Age: 27 Year
  Sex: Female

DRUGS (3)
  1. ADVIL [Suspect]
     Active Substance: IBUPROFEN
     Indication: PRODUCT USED FOR UNKNOWN INDICATION
     Dosage: UNK
  2. VALTREX [Suspect]
     Active Substance: VALACYCLOVIR HYDROCHLORIDE
     Indication: ADVERSE REACTION
     Dosage: 1 G, TID
  3. BLISOVI (ETHINYL ESTRADIOL + NORETHINDRONE) [Concomitant]
     Indication: CONTRACEPTION
     Dosage: UNK

REACTIONS (9)
  - Headache [Recovered/Resolved]
  - Herpes zoster [Unknown]
  - Feeling hot [Recovered/Resolved]
  - Tension headache [Recovered/Resolved]
  - Vision blurred [Unknown]
  - Wound haemorrhage [Unknown]
  - Pruritus [Unknown]
  - Acne [Unknown]
  - Scab [Unknown]

NARRATIVE: CASE EVENT DATE: 20210228
